FAERS Safety Report 5949379-X (Version None)
Quarter: 2008Q4

REPORT INFORMATION
  Report Type: 
  Country: None (occurrence: None)
  Receive Date: 20081112
  Receipt Date: 20081029
  Transmission Date: 20090506
  Serious: Yes (Other)
  Sender: FDA-Public Use
  Company Number: PHBS2008IT06193

PATIENT
  Age: 56 Year
  Sex: Male

DRUGS (4)
  1. ZOLEDRONIC ACID [Suspect]
     Indication: RENAL CELL CARCINOMA
     Dosage: UNK
     Dates: end: 20060501
  2. PROLEUKIN [Concomitant]
     Indication: RENAL CELL CARCINOMA
     Dosage: UNK
     Route: 058
  3. GEMCITABINE HCL [Concomitant]
     Dosage: UNK
     Dates: end: 20060501
  4. FLUOROURACIL [Concomitant]
     Dosage: UNK
     Dates: end: 20060501

REACTIONS (8)
  - BONE DISORDER [None]
  - MASTICATION DISORDER [None]
  - OSTEOMYELITIS [None]
  - OSTEONECROSIS [None]
  - PRIMARY SEQUESTRUM [None]
  - PURULENT DISCHARGE [None]
  - TOOTH ABSCESS [None]
  - TOOTH LOSS [None]
